FAERS Safety Report 12256732 (Version 2)
Quarter: 2016Q3

REPORT INFORMATION
  Report Type: Spontaneous
  Country: US (occurrence: US)
  Receive Date: 20160412
  Receipt Date: 20160708
  Transmission Date: 20161109
  Serious: Yes (Hospitalization, Other)
  Sender: FDA-Public Use
  Company Number: US-PFIZER INC-2016197377

PATIENT
  Age: 53 Year
  Sex: Female

DRUGS (18)
  1. OXYBUTYNIN CHLORIDE. [Concomitant]
     Active Substance: OXYBUTYNIN CHLORIDE
     Dosage: 10 MG, DAILY (5MG, 1 TABLET TWICE DAILY)
     Route: 048
     Dates: start: 20151016
  2. CLINDAMYCIN HYDROCHLORIDE. [Concomitant]
     Active Substance: CLINDAMYCIN HYDROCHLORIDE
     Dosage: 150 MG, 3X/DAY
     Route: 048
     Dates: start: 20160121
  3. PREDNISONE. [Concomitant]
     Active Substance: PREDNISONE
     Dosage: 20 MG, DAILY SOMETIMES.
     Route: 048
     Dates: start: 20160205
  4. ASPIRIN 81 [Concomitant]
     Active Substance: ASPIRIN
     Dosage: 81 MG, UNK
  5. ALBUTEROL. [Concomitant]
     Active Substance: ALBUTEROL
     Dosage: UNK
  6. PROVENTIL HFA [Concomitant]
     Active Substance: ALBUTEROL SULFATE
     Indication: DYSPNOEA
     Dosage: UNK, AS NEEDED (108(90BASE) 1-2 PUFFS EVERY 4 HOURS AS NEEDED)
     Dates: start: 20140926
  7. ADVAIR HFA [Concomitant]
     Active Substance: FLUTICASONE PROPIONATE\SALMETEROL XINAFOATE
     Dosage: UNK (250-50MCG/DOSE)
     Dates: start: 20140926
  8. CLONIDINE HCL [Concomitant]
     Active Substance: CLONIDINE HYDROCHLORIDE
     Indication: SLEEP DISORDER
     Dosage: 0.1 MG, 1X/DAY (0.1MG TABLET AT NIGHT)
     Dates: start: 20141216
  9. EFFEXOR XR [Suspect]
     Active Substance: VENLAFAXINE HYDROCHLORIDE
     Indication: DEPRESSION
     Dosage: 75 MG, DAILY
  10. IPRATROPIUM-ALBUTEROL [Concomitant]
     Active Substance: ALBUTEROL\IPRATROPIUM
     Dosage: UNK, EVERY 4 HRS (0.5-2.5 (3)MG/3ML INH SOL, ONE VIAL EVERY 4 HRS)
     Dates: start: 20160107
  11. LYRICA [Suspect]
     Active Substance: PREGABALIN
     Indication: BACK PAIN
     Dosage: 100 MG, DAILY (50MG, 1 TABLET TWICE DAILY)
     Route: 048
     Dates: start: 2014
  12. NORCO [Concomitant]
     Active Substance: ACETAMINOPHEN\HYDROCODONE BITARTRATE
     Dosage: UNK, AS NEEDED (HYDROCODONE-10MG, ACETAMINOPHEN-325MG;1 TABLET DAILY AS NEEDED)
     Route: 048
     Dates: start: 20150209
  13. DIAZEPAM. [Concomitant]
     Active Substance: DIAZEPAM
     Dosage: 1/2-1 TABLET DAILY AS NEEDED
     Route: 048
     Dates: start: 20151208
  14. ATENOLOL. [Concomitant]
     Active Substance: ATENOLOL
     Dosage: 25 MG, DAILY
     Route: 048
     Dates: start: 20151214
  15. SYNTHROID [Concomitant]
     Active Substance: LEVOTHYROXINE SODIUM
     Dosage: 100 UG, 1X/DAY (TAKE 1 TABLET EMPTY STOMACH 30 MINUTES BEFORE BREAKFAST)
     Route: 048
     Dates: start: 20160107
  16. EFFEXOR XR [Suspect]
     Active Substance: VENLAFAXINE HYDROCHLORIDE
     Dosage: 20 MG, 1X/DAY
     Dates: start: 2014
  17. NEURONTIN [Suspect]
     Active Substance: GABAPENTIN
     Dosage: 900 MG, DAILY (600MG, 1/2 TABLET 3 TIMES DAILY)
     Route: 048
     Dates: start: 20160115
  18. CELEXA [Concomitant]
     Active Substance: CITALOPRAM HYDROBROMIDE
     Dosage: 20 MG, DAILY
     Route: 048
     Dates: start: 20151208

REACTIONS (12)
  - Arthritis [Not Recovered/Not Resolved]
  - Breast mass [Not Recovered/Not Resolved]
  - Muscle spasms [Not Recovered/Not Resolved]
  - Dermal cyst [Not Recovered/Not Resolved]
  - Anxiety [Not Recovered/Not Resolved]
  - Wheezing [Not Recovered/Not Resolved]
  - Chronic obstructive pulmonary disease [Not Recovered/Not Resolved]
  - Lymphadenopathy [Not Recovered/Not Resolved]
  - Salivary gland enlargement [Not Recovered/Not Resolved]
  - Upper respiratory tract infection [Not Recovered/Not Resolved]
  - Depression [Not Recovered/Not Resolved]
  - Back pain [Not Recovered/Not Resolved]

NARRATIVE: CASE EVENT DATE: 201409
